FAERS Safety Report 6112554-8 (Version None)
Quarter: 2009Q1

REPORT INFORMATION
  Report Type: 
  Country: None (occurrence: None)
  Receive Date: 20090312
  Receipt Date: 20090305
  Transmission Date: 20090719
  Serious: Yes (Hospitalization, Other)
  Sender: FDA-Public Use
  Company Number: BR-ABBOTT-09P-020-0560590-00

PATIENT
  Sex: Female

DRUGS (4)
  1. HUMIRA [Suspect]
     Indication: RHEUMATOID ARTHRITIS
     Route: 058
     Dates: start: 20070501, end: 20081201
  2. OXCARBAZEPINE [Concomitant]
     Indication: BIPOLAR DISORDER
  3. RISPERIDONE [Concomitant]
     Indication: BIPOLAR DISORDER
  4. CLONAZEPAM [Concomitant]
     Indication: SLEEP DISORDER THERAPY

REACTIONS (2)
  - IMPAIRED HEALING [None]
  - SYNOVIAL CYST [None]
